FAERS Safety Report 10210464 (Version 2)
Quarter: 2014Q2

REPORT INFORMATION
  Report Type: Spontaneous
  Country: US (occurrence: US)
  Receive Date: 20140602
  Receipt Date: 20140602
  Transmission Date: 20141212
  Serious: Yes (Other)
  Sender: FDA-Public Use
  Company Number: US-MALLINCKRODT-T201401768

PATIENT
  Sex: Male

DRUGS (4)
  1. GABLOFEN [Suspect]
     Indication: MUSCLE SPASTICITY
     Dosage: 300 MCG/DAY
     Route: 037
  2. GABLOFEN [Suspect]
     Dosage: UNK
     Route: 037
     Dates: start: 20071023
  3. BACLOFEN [Concomitant]
     Route: 048
  4. FLOMAX [Concomitant]
     Dosage: UNK

REACTIONS (4)
  - Decubitus ulcer [Not Recovered/Not Resolved]
  - Hypertonia [Unknown]
  - Pain [Unknown]
  - Device connection issue [Unknown]
